FAERS Safety Report 15539530 (Version 2)
Quarter: 2018Q4

REPORT INFORMATION
  Report Type: Spontaneous
  Country: US (occurrence: US)
  Receive Date: 20181023
  Receipt Date: 20181029
  Transmission Date: 20190205
  Serious: No
  Sender: FDA-Public Use
  Company Number: US-TEVA-2018-US-965313

PATIENT
  Sex: Female
  Weight: 61.29 kg

DRUGS (1)
  1. JUNEL 1/20 [Suspect]
     Active Substance: ETHINYL ESTRADIOL\NORETHINDRONE ACETATE
     Indication: CONTRACEPTION
     Dosage: 1-20 EVERY NIGHT? FORM STRENGTH: NORETHINDRONE1 MG/ETHINYLESTRADIOL 20 MCG
     Route: 048

REACTIONS (5)
  - Dysstasia [Unknown]
  - Vertigo [Unknown]
  - Product quality issue [Unknown]
  - Impaired driving ability [Unknown]
  - Dizziness [Unknown]
